FAERS Safety Report 13581349 (Version 1)
Quarter: 2017Q2

REPORT INFORMATION
  Report Type: Report from Study
  Country: None (occurrence: GB)
  Receive Date: 20170525
  Receipt Date: 20170525
  Transmission Date: 20170830
  Serious: Yes (Death)
  Sender: FDA-Public Use
  Company Number: GB-ABBVIE-17K-167-1986382-00

PATIENT
  Age: 65 Year
  Sex: Female
  Weight: 64.2 kg

DRUGS (7)
  1. HUMIRA [Suspect]
     Active Substance: ADALIMUMAB
     Indication: PSORIASIS
     Route: 058
     Dates: start: 20110621, end: 20160710
  2. RAMIPRIL. [Concomitant]
     Active Substance: RAMIPRIL
     Indication: PRODUCT USED FOR UNKNOWN INDICATION
     Dates: start: 20100605
  3. ACITRETIN. [Concomitant]
     Active Substance: ACITRETIN
     Indication: PRODUCT USED FOR UNKNOWN INDICATION
     Dates: start: 20160216
  4. ROSUVASTATIN. [Concomitant]
     Active Substance: ROSUVASTATIN
     Indication: PRODUCT USED FOR UNKNOWN INDICATION
     Dates: start: 20100605
  5. LANSOPRAZOLE. [Concomitant]
     Active Substance: LANSOPRAZOLE
     Indication: PRODUCT USED FOR UNKNOWN INDICATION
     Dates: start: 20070305
  6. BECLOMETHASONE [Concomitant]
     Active Substance: BECLOMETHASONE
     Indication: PRODUCT USED FOR UNKNOWN INDICATION
     Dates: start: 20150801
  7. IBUPROFEN. [Concomitant]
     Active Substance: IBUPROFEN
     Indication: PRODUCT USED FOR UNKNOWN INDICATION
     Dates: start: 20150401

REACTIONS (5)
  - Metastases to liver [Fatal]
  - Superior vena cava occlusion [Fatal]
  - Pulmonary hilum mass [Fatal]
  - Small cell lung cancer [Fatal]
  - Lymphadenopathy mediastinal [Fatal]

NARRATIVE: CASE EVENT DATE: 20161008
